FAERS Safety Report 4787462-5 (Version None)
Quarter: 2005Q4

REPORT INFORMATION
  Report Type: 
  Country: None (occurrence: None)
  Receive Date: 20051003
  Receipt Date: 20050926
  Transmission Date: 20060501
  Serious: Yes (Hospitalization)
  Sender: FDA-Public Use
  Company Number: USA-2005-0021311

PATIENT
  Age: 56 Year
  Sex: Female

DRUGS (4)
  1. OXYCODONE HCL [Suspect]
     Indication: PAIN
     Dosage: 80 MG, Q12H, ORAL
     Route: 048
     Dates: start: 20050920
  2. OXYCODONE HCL [Suspect]
     Indication: PAIN
     Dosage: 15 MG, QID, ORAL
     Route: 048
  3. CLONOPIN (CLONAZEPAM) [Concomitant]
  4. IBUPROFEN [Concomitant]

REACTIONS (3)
  - CYANOSIS [None]
  - PALLOR [None]
  - RESPIRATORY ARREST [None]
